FAERS Safety Report 16497473 (Version 2)
Quarter: 2019Q4

REPORT INFORMATION
  Report Type: Spontaneous
  Country: CA (occurrence: CA)
  Receive Date: 20190628
  Receipt Date: 20191120
  Transmission Date: 20200122
  Serious: Yes (Hospitalization, Other)
  Sender: FDA-Public Use
  Company Number: CA-TEVA-2019-CA-1067998

PATIENT
  Age: 70 Year
  Sex: Male
  Weight: 56 kg

DRUGS (4)
  1. PREDNISONE. [Suspect]
     Active Substance: PREDNISONE
     Route: 065
  2. INFLECTRA [Concomitant]
     Active Substance: INFLIXIMAB-DYYB
     Indication: COLITIS ULCERATIVE
     Dosage: ONCE IN 0, 2, AND 6 WEEKS, THEN EVERY 8 WEEKS,
     Route: 042
     Dates: start: 20190603
  3. PENTASA 4G [Concomitant]
     Dosage: ONGOING
  4. SOLU-MEDROL [Concomitant]
     Active Substance: METHYLPREDNISOLONE SODIUM SUCCINATE
     Dosage: UNKNOWN IF ONGOING
     Route: 042

REACTIONS (6)
  - Haematochezia [Recovering/Resolving]
  - Decreased appetite [Recovering/Resolving]
  - Pain [Recovering/Resolving]
  - Anaemia [Recovering/Resolving]
  - Lethargy [Recovering/Resolving]
  - Frequent bowel movements [Recovering/Resolving]
